FAERS Safety Report 9614400 (Version 2)
Quarter: 2013Q4

REPORT INFORMATION
  Report Type: Spontaneous
  Country: US (occurrence: US)
  Receive Date: 20131011
  Receipt Date: 20131114
  Transmission Date: 20140711
  Serious: Yes (Other)
  Sender: FDA-Public Use
  Company Number: US-CELGENEUS-163-POMAL-13101092

PATIENT
  Sex: Male

DRUGS (3)
  1. POMALYST [Suspect]
     Indication: PLASMA CELL MYELOMA
     Dosage: 4 MILLIGRAM
     Route: 048
     Dates: start: 201310
  2. DEXAMETHASONE [Concomitant]
     Indication: PRODUCT USED FOR UNKNOWN INDICATION
     Route: 065
  3. INHALER [Concomitant]
     Indication: DYSPNOEA
     Route: 065

REACTIONS (5)
  - Reaction to drug excipients [Unknown]
  - Drug dose omission [Unknown]
  - Epistaxis [Unknown]
  - Dyspnoea [Unknown]
  - Pain [Unknown]
